FAERS Safety Report 4733423-1 (Version None)
Quarter: 2005Q3

REPORT INFORMATION
  Report Type: 
  Country: None (occurrence: None)
  Receive Date: 20050729
  Receipt Date: 20050714
  Transmission Date: 20060218
  Serious: Yes (Hospitalization)
  Sender: FDA-Public Use
  Company Number: B0388242A

PATIENT
  Age: 36 Year
  Sex: Female

DRUGS (6)
  1. AZATHIOPRINE [Suspect]
     Dosage: 100 MG PER DAY
  2. SEPTRA [Suspect]
  3. PREDNISONE [Suspect]
  4. ZINACEF (CEFUORXIME SODIUM) [Suspect]
  5. CALCIUM SALT (CALCIUM SALT) [Suspect]
     Dosage: 500 MG PER DAY
  6. DINOPROSTONE (DINOPROSTONE) [Suspect]

REACTIONS (9)
  - BLOOD UREA INCREASED [None]
  - BLOOD URIC ACID INCREASED [None]
  - CAESAREAN SECTION [None]
  - CHOLESTASIS OF PREGNANCY [None]
  - DRUG EXPOSURE DURING PREGNANCY [None]
  - FOETAL DISTRESS SYNDROME [None]
  - GENITAL CANDIDIASIS [None]
  - PRURITUS GENERALISED [None]
  - SUPPRESSED LACTATION [None]
